FAERS Safety Report 16308037 (Version 2)
Quarter: 2020Q1

REPORT INFORMATION
  Report Type: Spontaneous
  Country: US (occurrence: US)
  Receive Date: 20190514
  Receipt Date: 20200219
  Transmission Date: 20200409
  Serious: No
  Sender: FDA-Public Use
  Company Number: US-GLAXOSMITHKLINE-US2019081655

PATIENT
  Sex: Female

DRUGS (1)
  1. NUCALA [Suspect]
     Active Substance: MEPOLIZUMAB
     Indication: PRODUCT USED FOR UNKNOWN INDICATION
     Dosage: UNK
     Route: 058
     Dates: start: 201904

REACTIONS (8)
  - Bronchitis [Unknown]
  - Headache [Unknown]
  - Pain [Unknown]
  - Asthma [Unknown]
  - Influenza [Unknown]
  - Pyrexia [Unknown]
  - Chills [Unknown]
  - Cough [Unknown]
